FAERS Safety Report 14879663 (Version 2)
Quarter: 2018Q2

REPORT INFORMATION
  Report Type: Spontaneous
  Country: US (occurrence: US)
  Receive Date: 20180511
  Receipt Date: 20180613
  Transmission Date: 20180711
  Serious: Yes (Disabling, Other)
  Sender: FDA-Public Use
  Company Number: US-REGENERON PHARMACEUTICALS, INC.-2018-23013

PATIENT

DRUGS (2)
  1. EYLEA [Suspect]
     Active Substance: AFLIBERCEPT
     Dosage: UNK, OS, ABOUT EVERY MONTH, LAST DOSE
     Route: 031
     Dates: start: 20180426, end: 20180426
  2. EYLEA [Suspect]
     Active Substance: AFLIBERCEPT
     Indication: NEOVASCULAR AGE-RELATED MACULAR DEGENERATION
     Dosage: UNK, OS, ABOUT EVERY MONTH
     Route: 031
     Dates: start: 20170619, end: 20180524

REACTIONS (7)
  - Visual acuity reduced transiently [Recovered/Resolved]
  - Eye haematoma [Recovered/Resolved]
  - Photophobia [Recovered/Resolved]
  - Drug hypersensitivity [Recovered/Resolved]
  - Eye pain [Recovered/Resolved]
  - Ocular hyperaemia [Unknown]
  - Blindness unilateral [Not Recovered/Not Resolved]

NARRATIVE: CASE EVENT DATE: 20180426
